FAERS Safety Report 12556040 (Version 2)
Quarter: 2016Q3

REPORT INFORMATION
  Report Type: Spontaneous
  Country: US (occurrence: US)
  Receive Date: 20160714
  Receipt Date: 20160928
  Transmission Date: 20161109
  Serious: Yes (Hospitalization, Other)
  Sender: FDA-Public Use
  Company Number: US-ELI_LILLY_AND_COMPANY-US201607003870

PATIENT
  Age: 63 Year
  Sex: Male
  Weight: 102.5 kg

DRUGS (10)
  1. PRAMIPEXOLE. [Concomitant]
     Active Substance: PRAMIPEXOLE
     Indication: SLEEP DISORDER
  2. AXIRON [Suspect]
     Active Substance: TESTOSTERONE
     Indication: ANDROGEN REPLACEMENT THERAPY
     Dosage: 2 PUMPS DAILY, OTHER
     Route: 061
     Dates: start: 201312
  3. AXIRON [Suspect]
     Active Substance: TESTOSTERONE
     Dosage: FOUR PUMPS DAILY, OTHER
     Route: 061
     Dates: start: 201403, end: 20141017
  4. PANTOPRAZOLE [Concomitant]
     Active Substance: PANTOPRAZOLE SODIUM
     Indication: DYSPHAGIA
     Dosage: UNK, UNKNOWN
     Route: 065
     Dates: start: 2003
  5. TOPROL XL [Concomitant]
     Active Substance: METOPROLOL SUCCINATE
     Indication: BLOOD TRIGLYCERIDES INCREASED
     Dosage: UNK, UNKNOWN
     Route: 065
     Dates: start: 2008
  6. LOTEPREDNOL [Concomitant]
     Active Substance: LOTEPREDNOL
     Indication: CORNEAL TRANSPLANT
     Dosage: UNK, UNKNOWN
     Route: 065
     Dates: start: 2009
  7. PRAMIPEXOLE. [Concomitant]
     Active Substance: PRAMIPEXOLE
     Indication: RESTLESS LEGS SYNDROME
     Dosage: UNK, UNKNOWN
     Route: 065
     Dates: start: 2007
  8. METFORMIN HCL [Concomitant]
     Active Substance: METFORMIN HYDROCHLORIDE
     Indication: DIABETES MELLITUS
     Dosage: UNK, UNKNOWN
     Route: 065
  9. STRATTERA [Concomitant]
     Active Substance: ATOMOXETINE HYDROCHLORIDE
     Indication: ATTENTION DEFICIT/HYPERACTIVITY DISORDER
     Dosage: UNK, UNKNOWN
     Route: 065
     Dates: start: 2007
  10. ANDROGEL [Suspect]
     Active Substance: TESTOSTERONE
     Indication: ANDROGEN REPLACEMENT THERAPY
     Dosage: FOUR PUMPS ONCE DAILY, OTHER
     Route: 061
     Dates: start: 20110526, end: 20131021

REACTIONS (2)
  - Myocardial infarction [Not Recovered/Not Resolved]
  - Myocardial infarction [Not Recovered/Not Resolved]

NARRATIVE: CASE EVENT DATE: 20140717
